FAERS Safety Report 9639906 (Version 2)
Quarter: 2013Q4

REPORT INFORMATION
  Report Type: Report from Study
  Country: AU (occurrence: AU)
  Receive Date: 20131023
  Receipt Date: 20131023
  Transmission Date: 20140711
  Serious: Yes (Other)
  Sender: FDA-Public Use
  Company Number: AU-ROCHE-GNE323476

PATIENT
  Age: 87 Year
  Sex: Male

DRUGS (1)
  1. RANIBIZUMAB [Suspect]
     Indication: AGE-RELATED MACULAR DEGENERATION
     Route: 050
     Dates: start: 20101122

REACTIONS (3)
  - Herpes zoster [Recovered/Resolved]
  - Visual acuity reduced [Unknown]
  - Vitreous floaters [Unknown]
